FAERS Safety Report 16601174 (Version 1)
Quarter: 2019Q3

REPORT INFORMATION
  Report Type: Spontaneous
  Country: IT (occurrence: IT)
  Receive Date: 20190719
  Receipt Date: 20190719
  Transmission Date: 20191004
  Serious: Yes (Other)
  Sender: FDA-Public Use
  Company Number: IT-JNJFOC-20190714785

PATIENT
  Age: 4 Year
  Sex: Female

DRUGS (1)
  1. DUROGESIC [Suspect]
     Active Substance: FENTANYL
     Indication: PRODUCT USED FOR UNKNOWN INDICATION
     Dosage: 50 MCG / HOUR
     Route: 062
     Dates: start: 20190707

REACTIONS (4)
  - Miosis [Unknown]
  - Vomiting [Unknown]
  - Nausea [Unknown]
  - Product administration error [Unknown]

NARRATIVE: CASE EVENT DATE: 20190707
